FAERS Safety Report 15819599 (Version 1)
Quarter: 2019Q1

REPORT INFORMATION
  Report Type: Report from Study
  Country: ES (occurrence: ES)
  Receive Date: 20190114
  Receipt Date: 20190114
  Transmission Date: 20190417
  Serious: Yes (Hospitalization)
  Sender: FDA-Public Use
  Company Number: ES-TEVA-2019-ES-998312

PATIENT
  Age: 37 Year
  Sex: Female

DRUGS (2)
  1. AMOXICILINA/CLAVULANICO [Suspect]
     Active Substance: AMOXICILLIN\CLAVULANIC ACID
     Indication: PERITONSILLAR ABSCESS
     Route: 065
     Dates: start: 20180830
  2. NAPROXENO [Suspect]
     Active Substance: NAPROXEN
     Indication: PERITONSILLAR ABSCESS
     Route: 065
     Dates: start: 20180915

REACTIONS (3)
  - Purpura [Recovered/Resolved]
  - Pain in extremity [Recovered/Resolved]
  - Odynophagia [Recovered/Resolved]

NARRATIVE: CASE EVENT DATE: 20180919
